FAERS Safety Report 22996008 (Version 4)
Quarter: 2023Q4

REPORT INFORMATION
  Report Type: Spontaneous
  Country: DE (occurrence: DE)
  Receive Date: 20230927
  Receipt Date: 20231028
  Transmission Date: 20240110
  Serious: Yes (Hospitalization, Disabling, Other)
  Sender: FDA-Public Use
  Company Number: DE-002147023-NVSC2023DE139051

PATIENT
  Age: 56 Year
  Sex: Male
  Weight: 120 kg

DRUGS (11)
  1. BISOPROLOL FUMARATE [Suspect]
     Active Substance: BISOPROLOL FUMARATE
     Indication: Cardiac failure
     Dosage: 5 MG
     Route: 048
     Dates: start: 20230306
  2. ENTRESTO [Suspect]
     Active Substance: SACUBITRIL\VALSARTAN
     Indication: Cardiac failure
     Dosage: 49/51MG
     Route: 065
     Dates: start: 20230306
  3. EPLERENONE [Suspect]
     Active Substance: EPLERENONE
     Indication: Cardiac failure
     Dosage: 25 MG
     Route: 065
     Dates: start: 20230306
  4. FILGRASTIM [Suspect]
     Active Substance: FILGRASTIM
     Indication: Haematopoietic stem cell mobilisation
     Dosage: UNK, 5X30 MU/0.5ML
     Route: 058
     Dates: start: 20121108, end: 20121113
  5. FILGRASTIM [Suspect]
     Active Substance: FILGRASTIM
     Dosage: UNK, 5X48 MU/0.5ML
     Route: 058
     Dates: start: 20121108, end: 20121113
  6. JARDIANCE [Suspect]
     Active Substance: EMPAGLIFLOZIN
     Indication: Cardiac failure
     Dosage: 10 MG
     Route: 065
     Dates: start: 20230306
  7. TORSEMIDE [Suspect]
     Active Substance: TORSEMIDE
     Indication: Cardiac failure
     Dosage: 10 MG
     Route: 065
     Dates: start: 20230306
  8. AMLODIPINE BESYLATE [Concomitant]
     Active Substance: AMLODIPINE BESYLATE
     Indication: Hypertension
     Dosage: UNK
     Route: 065
     Dates: start: 202202, end: 20230306
  9. RAMIPRIL [Concomitant]
     Active Substance: RAMIPRIL
     Indication: Hypertension
     Dosage: UNK
     Route: 048
     Dates: start: 202202, end: 20230306
  10. ZARXIO [Concomitant]
     Active Substance: FILGRASTIM-SNDZ
     Indication: Haematopoietic stem cell mobilisation
     Route: 065
  11. ZARXIO [Concomitant]
     Active Substance: FILGRASTIM-SNDZ
     Indication: Haematopoietic stem cell mobilisation
     Route: 065

REACTIONS (5)
  - Cardiac failure [Not Recovered/Not Resolved]
  - Arrhythmia [Unknown]
  - Cardiomegaly [Unknown]
  - Cardiac failure [Not Recovered/Not Resolved]
  - Arrhythmia [Unknown]

NARRATIVE: CASE EVENT DATE: 20220201
